FAERS Safety Report 10115952 (Version 2)
Quarter: 2015Q1

REPORT INFORMATION
  Report Type: Other
  Country: US (occurrence: US)
  Receive Date: 20140426
  Receipt Date: 20150316
  Transmission Date: 20150720
  Serious: Yes (Hospitalization, Other)
  Sender: FDA-Public Use
  Company Number: US-GSKPPD-2014GSK015638

PATIENT
  Age: 58 Year
  Sex: Male

DRUGS (5)
  1. HYDROCHLOROTHIAZIDE. [Concomitant]
     Active Substance: HYDROCHLOROTHIAZIDE
  2. UNIVASC [Concomitant]
     Active Substance: MOEXIPRIL HYDROCHLORIDE
  3. AGGRENOX [Concomitant]
     Active Substance: ASPIRIN\DIPYRIDAMOLE
     Dosage: 25 PER 200 MG
  4. TOPROL XL [Concomitant]
     Active Substance: METOPROLOL SUCCINATE
  5. AVANDIA [Suspect]
     Active Substance: ROSIGLITAZONE MALEATE
     Indication: DIABETES MELLITUS
     Dosage: DATES OF AVANDIA USE COULD NOT BE CONFIRMED IN RECORDS REVIEWED
     Route: 048

REACTIONS (1)
  - Cerebrovascular accident [Recovered/Resolved]

NARRATIVE: CASE EVENT DATE: 20070429
